FAERS Safety Report 5993159-6 (Version None)
Quarter: 2008Q4

REPORT INFORMATION
  Report Type: 
  Country: None (occurrence: None)
  Receive Date: 20081212
  Receipt Date: 20080603
  Transmission Date: 20090506
  Serious: No
  Sender: FDA-Public Use
  Company Number: US-AMGEN-KDL284586

PATIENT
  Sex: Female

DRUGS (2)
  1. ENBREL [Suspect]
     Indication: RHEUMATOID ARTHRITIS
     Route: 058
     Dates: start: 20071029
  2. PLAQUENIL [Concomitant]
     Dates: start: 19980101

REACTIONS (4)
  - DRY SKIN [None]
  - INJECTION SITE ERYTHEMA [None]
  - PRURITUS [None]
  - SKIN EXFOLIATION [None]
